FAERS Safety Report 9399605 (Version 3)
Quarter: 2013Q3

REPORT INFORMATION
  Report Type: Spontaneous
  Country: US (occurrence: US)
  Receive Date: 20130710
  Receipt Date: 20130828
  Transmission Date: 20140515
  Serious: Yes (Other)
  Sender: FDA-Public Use
  Company Number: CIO13036529

PATIENT
  Age: 21 Year
  Sex: Female
  Weight: 51.7 kg

DRUGS (3)
  1. CREST SENSITIVITY CLINICAL WHITENING + SCOPE TOOTHPASTE, MINTY FRESH FLAVOR (CETYLPYRIDINUM CHLORIDE 0.002%M ETHANOL 1.09%, PKTASSIUM NITRATE 5%, SODIUM FLUORIDE 0.243%) PASTE, 1 APPLICATION [Suspect]
  2. PREVACID (LANSOPRAZOLE) [Concomitant]
  3. ADDERALL [Concomitant]

REACTIONS (4)
  - Upper airway obstruction [None]
  - Swollen tongue [None]
  - Hypersensitivity [None]
  - Feeling abnormal [None]
